FAERS Safety Report 7444238-8 (Version None)
Quarter: 2011Q2

REPORT INFORMATION
  Report Type: 
  Country: None (occurrence: None)
  Receive Date: 20110419
  Receipt Date: 20110404
  Transmission Date: 20111010
  Serious: Yes (Hospitalization)
  Sender: FDA-Public Use
  Company Number: IT-ACCORD-008754

PATIENT
  Age: 70 Year
  Sex: Female

DRUGS (1)
  1. ANASTROZOLE [Suspect]
     Indication: BREAST CANCER
     Dosage: 1.00-MG-1.CDAYS /
     Dates: start: 20080801

REACTIONS (8)
  - CHOLESTATIC LIVER INJURY [None]
  - HEPATIC FIBROSIS [None]
  - HEPATOTOXICITY [None]
  - HEPATOCELLULAR INJURY [None]
  - HEPATIC STEATOSIS [None]
  - HEPATITIS ACUTE [None]
  - ANTINUCLEAR ANTIBODY POSITIVE [None]
  - BILIARY DILATATION [None]
